FAERS Safety Report 6827101-2 (Version None)
Quarter: 2010Q3

REPORT INFORMATION
  Report Type: 
  Country: None (occurrence: None)
  Receive Date: 20100709
  Receipt Date: 20100630
  Transmission Date: 20110219
  Serious: Yes (Hospitalization)
  Sender: FDA-Public Use
  Company Number: US-ABBOTT-09P-163-0586867-00

PATIENT
  Sex: Male
  Weight: 115.77 kg

DRUGS (2)
  1. TRILIPIX [Suspect]
     Indication: BLOOD TRIGLYCERIDES INCREASED
     Dates: start: 20090613, end: 20090706
  2. CELEXA [Concomitant]
     Indication: ANXIETY

REACTIONS (6)
  - ABDOMINAL PAIN [None]
  - CHEMICAL PERITONITIS [None]
  - CHOLECYSTITIS ACUTE [None]
  - CHOLECYSTITIS CHRONIC [None]
  - GALLBLADDER NON-FUNCTIONING [None]
  - POST PROCEDURAL BILE LEAK [None]
